FAERS Safety Report 6773543-3 (Version None)
Quarter: 2010Q2

REPORT INFORMATION
  Report Type: 
  Country: None (occurrence: None)
  Receive Date: 20100616
  Receipt Date: 20100609
  Transmission Date: 20101027
  Serious: Yes (Death, Other)
  Sender: FDA-Public Use
  Company Number: US-AMGEN-QUU417299

PATIENT
  Sex: Female

DRUGS (3)
  1. NPLATE [Suspect]
     Indication: IDIOPATHIC THROMBOCYTOPENIC PURPURA
     Dates: start: 20090913, end: 20090923
  2. CORTICOSTEROIDS [Concomitant]
  3. IMMU-G [Concomitant]
     Route: 042

REACTIONS (2)
  - DRUG INEFFECTIVE [None]
  - NON-HODGKIN'S LYMPHOMA RECURRENT [None]
